FAERS Safety Report 8539621-3 (Version None)
Quarter: 2012Q3

REPORT INFORMATION
  Report Type: 
  Country: None (occurrence: None)
  Receive Date: 20120726
  Receipt Date: 20120712
  Transmission Date: 20120928
  Serious: No
  Sender: FDA-Public Use
  Company Number: VE-PFIZER INC-2012158335

PATIENT
  Age: 60 Year
  Sex: Male

DRUGS (1)
  1. LIPITOR [Suspect]
     Indication: CORONARY ARTERY BYPASS
     Dosage: 40 MG, UNK
     Dates: start: 19990101

REACTIONS (1)
  - NO ADVERSE EVENT [None]
